FAERS Safety Report 8332562-6 (Version None)
Quarter: 2012Q1

REPORT INFORMATION
  Report Type: 
  Country: None (occurrence: None)
  Receive Date: 20120327
  Receipt Date: 20100616
  Transmission Date: 20120608
  Serious: Yes (Other)
  Sender: FDA-Public Use
  Company Number: PHEH2002US09615

PATIENT
  Age: 84 Year
  Sex: Male
  Weight: 99.8 kg

DRUGS (8)
  1. GLEEVEC [Suspect]
     Indication: CHRONIC MYELOID LEUKAEMIA
     Dosage: 400 MG, QD, ORAL; 300 MG, QD, ORAL; 400 MG DAILY, ORAL
     Route: 048
     Dates: start: 20090226
  2. GLEEVEC [Suspect]
     Indication: CHRONIC MYELOID LEUKAEMIA
     Dosage: 400 MG, QD, ORAL; 300 MG, QD, ORAL; 400 MG DAILY, ORAL
     Route: 048
     Dates: start: 20010601
  3. MULTIVITAMINS (ASCORBIC ACID, ERGOCALCIFEROL, FOLIC ACID, NICOTINAMIDE [Concomitant]
  4. VITAMIN B12 [Concomitant]
  5. PHYTONADIONE [Concomitant]
  6. VITAMIN E [Concomitant]
  7. BETACAROTENE [Concomitant]
  8. SIMVASTATIN [Concomitant]

REACTIONS (4)
  - BLOOD CHOLESTEROL INCREASED [None]
  - HYPOAESTHESIA [None]
  - MUSCLE SPASMS [None]
  - NEUROPATHY PERIPHERAL [None]
